FAERS Safety Report 16823952 (Version 8)
Quarter: 2020Q2

REPORT INFORMATION
  Report Type: Report from Study
  Country: US (occurrence: US)
  Receive Date: 20190918
  Receipt Date: 20200618
  Transmission Date: 20200713
  Serious: Yes (Hospitalization)
  Sender: FDA-Public Use
  Company Number: US-ACTELION-A-NJ2019-194213

PATIENT
  Sex: Female
  Weight: 65.76 kg

DRUGS (1)
  1. VELETRI [Suspect]
     Active Substance: EPOPROSTENOL
     Indication: PULMONARY ARTERIAL HYPERTENSION
     Dosage: 40 NG/KG, PER MIN
     Route: 042

REACTIONS (14)
  - Dyspnoea [Unknown]
  - Pneumonia [Unknown]
  - Hospitalisation [Unknown]
  - Tachycardia [Unknown]
  - Diarrhoea [Unknown]
  - Dyspnoea exertional [Unknown]
  - Palpitations [Unknown]
  - Cardiac disorder [Unknown]
  - Pyrexia [Unknown]
  - Catheter site pruritus [Unknown]
  - Catheter site erythema [Unknown]
  - Emergency care examination [Unknown]
  - Gastroenteritis viral [Unknown]
  - Fluid retention [Unknown]
